FAERS Safety Report 21015579 (Version 9)
Quarter: 2023Q1

REPORT INFORMATION
  Report Type: Report from Study
  Country: JP (occurrence: JP)
  Receive Date: 20220628
  Receipt Date: 20230127
  Transmission Date: 20230418
  Serious: Yes (Hospitalization, Other)
  Sender: FDA-Public Use
  Company Number: JP-ABBVIE-22K-087-4446812-00

PATIENT
  Age: 69 Year
  Sex: Male

DRUGS (30)
  1. SKYRIZI [Suspect]
     Active Substance: RISANKIZUMAB-RZAA
     Indication: Psoriasis
     Dosage: FIRST REGIMEN
     Route: 058
     Dates: start: 20200902, end: 20200930
  2. SKYRIZI [Suspect]
     Active Substance: RISANKIZUMAB-RZAA
     Dosage: SECOND REGIMEN
     Route: 058
     Dates: start: 20200930
  3. ALLOPURINOL [Concomitant]
     Active Substance: ALLOPURINOL
     Indication: Hyperuricaemia
     Dosage: 100 MILLIGRAM
     Route: 048
     Dates: start: 20180627
  4. ACETAMINOPHEN [Concomitant]
     Active Substance: ACETAMINOPHEN
     Indication: Analgesic therapy
     Dosage: 1000 MILLIGRAM
     Route: 041
     Dates: start: 20220825, end: 20220825
  5. OMEGA-3 FATTY ACIDS [Concomitant]
     Active Substance: OMEGA-3 FATTY ACIDS
     Indication: Lipid metabolism disorder
     Route: 048
     Dates: start: 20180221
  6. LIRANAFTATE [Concomitant]
     Active Substance: LIRANAFTATE
     Indication: Tinea infection
     Dosage: 0.2 GRAM
     Route: 061
     Dates: start: 20130214
  7. ROCURONIUM BROMIDE [Concomitant]
     Active Substance: ROCURONIUM BROMIDE
     Indication: Hypotonia
     Dosage: 50 MILLIGRAM
     Route: 041
     Dates: start: 20220825, end: 20220825
  8. ROCURONIUM BROMIDE [Concomitant]
     Active Substance: ROCURONIUM BROMIDE
     Indication: Hypotonia
     Dosage: 50 MILLIGRAM
     Route: 041
     Dates: start: 20220825, end: 20220825
  9. REMIFENTANIL [Concomitant]
     Active Substance: REMIFENTANIL
     Indication: Analgesic therapy
     Dosage: 5 MILLIGRAM
     Route: 041
     Dates: start: 20220825, end: 20220825
  10. REMIFENTANIL [Concomitant]
     Active Substance: REMIFENTANIL
     Indication: Analgesic therapy
     Dosage: 5 MILLIGRAM
     Route: 041
     Dates: start: 20220825, end: 20220825
  11. PROPOFOL [Concomitant]
     Active Substance: PROPOFOL
     Indication: General anaesthesia
     Dosage: 200 MILLIGRAM
     Route: 041
     Dates: start: 20220825, end: 20220825
  12. PROPOFOL [Concomitant]
     Active Substance: PROPOFOL
     Indication: General anaesthesia
     Dosage: 200 MILLIGRAM
     Route: 041
     Dates: start: 20220825, end: 20220825
  13. BETAMETHASONE DIPROPIONATE;CALCIPOTRIOL MONOHYDRATE [Concomitant]
     Indication: Psoriasis
     Dosage: 0.1 GRAM
     Route: 061
     Dates: start: 20181212
  14. LOXOPROFEN SODIUM DIHYDRATE [Concomitant]
     Active Substance: LOXOPROFEN SODIUM DIHYDRATE
     Indication: Postoperative analgesia
     Dosage: 60 MILLIGRAM
     Route: 048
     Dates: start: 20220826, end: 20220826
  15. LOXOPROFEN SODIUM DIHYDRATE [Concomitant]
     Active Substance: LOXOPROFEN SODIUM DIHYDRATE
     Indication: Postoperative analgesia
     Dosage: 60 MILLIGRAM
     Route: 048
     Dates: start: 20220826, end: 20220826
  16. AZILSARTAN KAMEDOXOMIL [Concomitant]
     Active Substance: AZILSARTAN KAMEDOXOMIL
     Indication: Hypertension
     Dosage: 40 MILLIGRAM
     Route: 048
     Dates: start: 20220928
  17. AZILSARTAN KAMEDOXOMIL [Concomitant]
     Active Substance: AZILSARTAN KAMEDOXOMIL
     Indication: Hypertension
     Dosage: 20 MILLIGRAM
     Route: 048
     Dates: start: 20220810, end: 20220927
  18. SUPRANE [Concomitant]
     Active Substance: DESFLURANE
     Indication: General anaesthesia
     Dosage: 78.79 MILLILITER
     Route: 055
     Dates: start: 20220825, end: 20220825
  19. SUPRANE [Concomitant]
     Active Substance: DESFLURANE
     Indication: General anaesthesia
     Dosage: 78.79 MILLILITER
     Route: 055
     Dates: start: 20220825, end: 20220825
  20. CEFAZOLIN SODIUM [Concomitant]
     Active Substance: CEFAZOLIN SODIUM
     Indication: Infection prophylaxis
     Dosage: 1 GRAM
     Route: 041
     Dates: start: 20220825, end: 20220825
  21. FENTANYL CITRATE [Concomitant]
     Active Substance: FENTANYL CITRATE
     Indication: General anaesthesia
     Dosage: 8 MILLILITER
     Route: 041
     Dates: start: 20220825, end: 20220825
  22. FENTANYL CITRATE [Concomitant]
     Active Substance: FENTANYL CITRATE
     Indication: General anaesthesia
     Dosage: 8 MILLILITER
     Route: 041
     Dates: start: 20220825, end: 20220825
  23. EPHEDRINE HYDROCHLORIDE [Concomitant]
     Active Substance: EPHEDRINE HYDROCHLORIDE
     Indication: Blood pressure management
     Dosage: 40 MILLIGRAM
     Route: 041
     Dates: start: 20220825, end: 20220825
  24. EPHEDRINE HYDROCHLORIDE [Concomitant]
     Active Substance: EPHEDRINE HYDROCHLORIDE
     Indication: Blood pressure management
     Dosage: 40 MILLIGRAM
     Route: 041
     Dates: start: 20220825, end: 20220825
  25. LIDOCAINE [Concomitant]
     Active Substance: LIDOCAINE
     Indication: Local anaesthesia
     Dosage: 4 MILLILITER
     Route: 058
     Dates: start: 20220825, end: 20220825
  26. MAXACALCITOL TOWA [Concomitant]
     Indication: Psoriasis
     Dosage: 1 GRAM
     Route: 061
     Dates: start: 20170210
  27. COVID-19 vaccine [Concomitant]
     Indication: COVID-19 immunisation
     Dosage: 0.30 MILLILITER
     Route: 030
     Dates: start: 20220301, end: 20220301
  28. Sugammadex pharmazac [Concomitant]
     Indication: Muscle relaxant therapy
     Dosage: 200 MILLIGRAM
     Route: 041
     Dates: start: 20220825, end: 20220825
  29. OMEGA-3-ACID ETHYL ESTERS [Concomitant]
     Active Substance: OMEGA-3-ACID ETHYL ESTERS
     Indication: Prophylaxis
     Dosage: 2 GRAM
     Route: 048
     Dates: start: 20220928
  30. OMEGA-3-ACID ETHYL ESTERS [Concomitant]
     Active Substance: OMEGA-3-ACID ETHYL ESTERS
     Indication: Prophylaxis
     Dosage: 2 GRAM
     Route: 048
     Dates: start: 20180221, end: 20220818

REACTIONS (3)
  - Salivary gland neoplasm [Recovered/Resolved]
  - Hypertension [Not Recovered/Not Resolved]
  - Nasopharyngitis [Recovered/Resolved]

NARRATIVE: CASE EVENT DATE: 20210101
